FAERS Safety Report 6091384-X (Version None)
Quarter: 2009Q1

REPORT INFORMATION
  Report Type: 
  Country: None (occurrence: None)
  Receive Date: 20090225
  Receipt Date: 20081118
  Transmission Date: 20090719
  Serious: No
  Sender: FDA-Public Use
  Company Number: A0757045A

PATIENT
  Age: 54 Year
  Sex: Female

DRUGS (3)
  1. VERAMYST [Suspect]
     Dosage: 1SPR PER DAY
     Route: 045
     Dates: start: 20081031, end: 20081103
  2. SYNTHROID [Concomitant]
  3. PROVENTIL [Concomitant]

REACTIONS (2)
  - HEADACHE [None]
  - MIGRAINE [None]
